FAERS Safety Report 4756040-6 (Version None)
Quarter: 2005Q3

REPORT INFORMATION
  Report Type: 
  Country: None (occurrence: None)
  Receive Date: 20050830
  Receipt Date: 20050818
  Transmission Date: 20060218
  Serious: Yes (Hospitalization)
  Sender: FDA-Public Use
  Company Number: JP-BRISTOL-MYERS SQUIBB COMPANY-13081542

PATIENT
  Age: 39 Year
  Sex: Male

DRUGS (3)
  1. STAVUDINE [Suspect]
  2. NELFINAVIR [Suspect]
  3. NEVIRAPINE [Suspect]

REACTIONS (3)
  - CORONARY ARTERY ATHEROSCLEROSIS [None]
  - DYSLIPIDAEMIA [None]
  - HYPERTENSION [None]
